FAERS Safety Report 6456772-8 (Version None)
Quarter: 2009Q4

REPORT INFORMATION
  Report Type: 
  Country: None (occurrence: None)
  Receive Date: 20091120
  Receipt Date: 20091107
  Transmission Date: 20100525
  Serious: Yes (Life-Threatening, Hospitalization)
  Sender: FDA-Public Use
  Company Number: APP200900758

PATIENT
  Age: 51 Year
  Sex: Female

DRUGS (6)
  1. DEXAMETHASONE SODIUM PHOSPHATE [Suspect]
     Indication: GLIOBLASTOMA
     Dosage: 4 MG, 1 D
     Dates: start: 20090901
  2. TEMOZOLOMIDE [Suspect]
     Indication: GLIOBLASTOMA
     Dosage: 75 MG/M2, 1 D, ORAL
     Route: 048
  3. METFORMIN HCL [Concomitant]
  4. DEMECLOCYCLINE           (DEMECLOCYLINE) [Concomitant]
  5. VANCOMYCIN [Concomitant]
  6. PIPERACILLIN-TAZOBACTAM             (PIP/TAZO) [Concomitant]

REACTIONS (17)
  - BLOOD CULTURE POSITIVE [None]
  - CULTURE URINE POSITIVE [None]
  - DIABETES INSIPIDUS [None]
  - ENCEPHALOPATHY [None]
  - GLIOBLASTOMA [None]
  - HYPOTENSION [None]
  - IMMUNOSUPPRESSION [None]
  - INAPPROPRIATE ANTIDIURETIC HORMONE SECRETION [None]
  - KLEBSIELLA INFECTION [None]
  - MALIGNANT NEOPLASM PROGRESSION [None]
  - RASH MORBILLIFORM [None]
  - RESPIRATORY FAILURE [None]
  - SMALL INTESTINAL OBSTRUCTION [None]
  - STRONGYLOIDIASIS [None]
  - SYSTEMIC INFLAMMATORY RESPONSE SYNDROME [None]
  - TACHYCARDIA [None]
  - VASCULITIS CEREBRAL [None]
